FAERS Safety Report 6551739-3 (Version None)
Quarter: 2010Q1

REPORT INFORMATION
  Report Type: 
  Country: None (occurrence: None)
  Receive Date: 20100120
  Receipt Date: 20100106
  Transmission Date: 20100710
  Serious: Yes (Hospitalization)
  Sender: FDA-Public Use
  Company Number: 2009SP036639

PATIENT
  Age: 30 Year
  Sex: Female
  Weight: 99.7913 kg

DRUGS (1)
  1. NUVARING [Suspect]
     Indication: CONTRACEPTION
     Dates: start: 20070704, end: 20070714

REACTIONS (16)
  - ACNE [None]
  - ACUTE SINUSITIS [None]
  - ATELECTASIS [None]
  - CHEST PAIN [None]
  - DEEP VEIN THROMBOSIS [None]
  - FALL [None]
  - INSOMNIA [None]
  - LIMB INJURY [None]
  - LUNG INFILTRATION [None]
  - OTITIS MEDIA [None]
  - PHARYNGITIS [None]
  - PLEURAL EFFUSION [None]
  - PNEUMONIA [None]
  - PULMONARY EMBOLISM [None]
  - UPPER RESPIRATORY TRACT INFECTION [None]
  - VAGINAL DISCHARGE [None]
